FAERS Safety Report 4988159-9 (Version None)
Quarter: 2006Q2

REPORT INFORMATION
  Report Type: 
  Country: None (occurrence: None)
  Receive Date: 20060501
  Receipt Date: 20060421
  Transmission Date: 20061013
  Serious: Yes (Hospitalization)
  Sender: FDA-Public Use
  Company Number: US-MERCK-0604USA03801

PATIENT
  Age: 52 Year
  Sex: Female
  Weight: 82 kg

DRUGS (10)
  1. VIOXX [Suspect]
     Indication: BACK PAIN
     Route: 048
     Dates: start: 20010301, end: 20010801
  2. WELLBUTRIN [Concomitant]
     Route: 065
  3. AVANDIA [Concomitant]
     Route: 065
  4. PREMARIN [Concomitant]
     Route: 065
  5. INSULIN [Concomitant]
     Route: 065
  6. CLONAZEPAM [Concomitant]
     Route: 065
  7. OXYCODONE [Concomitant]
     Route: 065
  8. ADDERALL TABLETS [Concomitant]
     Route: 065
  9. ZYRTEC [Concomitant]
     Route: 065
  10. SYNTHROID [Concomitant]
     Route: 065

REACTIONS (1)
  - CEREBROVASCULAR ACCIDENT [None]
